FAERS Safety Report 5940825-4 (Version None)
Quarter: 2008Q4

REPORT INFORMATION
  Report Type: 
  Country: None (occurrence: None)
  Receive Date: 20081104
  Receipt Date: 20081024
  Transmission Date: 20090506
  Serious: Yes (Hospitalization)
  Sender: FDA-Public Use
  Company Number: US-BAXTER-2008BH011584

PATIENT
  Age: 46 Year
  Sex: Female
  Weight: 82 kg

DRUGS (7)
  1. CYCLOPHOSPHAMIDE [Suspect]
     Indication: BREAST CANCER
     Route: 065
     Dates: start: 20060803, end: 20061015
  2. TAXOL [Suspect]
     Indication: BREAST CANCER
     Route: 065
     Dates: start: 20061026, end: 20070104
  3. EPIRUBICIN [Suspect]
     Indication: BREAST CANCER
     Route: 065
     Dates: start: 20060803, end: 20061015
  4. IBANDRONATE SODIUM [Suspect]
     Indication: BREAST CANCER
     Route: 048
     Dates: start: 20070123
  5. CAPECITABINE [Suspect]
     Indication: BREAST CANCER
     Route: 065
     Dates: start: 20061026, end: 20070104
  6. DARBEPOETIN ALFA [Concomitant]
     Dates: start: 20061012, end: 20061012
  7. NEULASTA [Concomitant]
     Dates: start: 20060901, end: 20061013

REACTIONS (1)
  - LYMPHADENECTOMY [None]
